FAERS Safety Report 20649687 (Version 3)
Quarter: 2022Q2

REPORT INFORMATION
  Report Type: Report from Study
  Country: CN (occurrence: None)
  Receive Date: 20220329
  Receipt Date: 20220617
  Transmission Date: 20220721
  Serious: Yes (Hospitalization)
  Sender: FDA-Public Use
  Company Number: CN-ROCHE-3054044

PATIENT
  Age: 60 Year
  Sex: Male
  Weight: 67 kg

DRUGS (11)
  1. ATEZOLIZUMAB [Suspect]
     Active Substance: ATEZOLIZUMAB
     Indication: Metastatic gastric cancer
     Dosage: EVERY 3 WEEKS (21 DAYS), LAST DATE OF ADMINISTRATION BEFORE EVENT: 18/FEB/2022
     Route: 041
     Dates: start: 20211104, end: 20220315
  2. TIRAGOLUMAB [Suspect]
     Active Substance: TIRAGOLUMAB
     Indication: Metastatic gastric cancer
     Dosage: EVERY 3 WEEKS (21 DAYS), LAST DATE OF ADMINISTRATION BEFORE EVENT: 18/FEB/2022
     Route: 042
     Dates: start: 20211104, end: 20220315
  3. OXALIPLATIN [Suspect]
     Active Substance: OXALIPLATIN
     Indication: Metastatic gastric cancer
     Route: 042
     Dates: start: 20211104
  4. CAPECITABINE [Suspect]
     Active Substance: CAPECITABINE
     Indication: Metastatic gastric cancer
     Route: 048
     Dates: start: 20211104
  5. ENTECAVIR [Concomitant]
     Active Substance: ENTECAVIR
     Dosage: TOTAL DAILY DOSE: 1 TABLET
     Dates: start: 20220112
  6. NICOTINAMIDE [Concomitant]
     Active Substance: NIACINAMIDE
     Dates: start: 20220310, end: 20220312
  7. NICOTINAMIDE [Concomitant]
     Active Substance: NIACINAMIDE
     Dates: start: 20220313, end: 20220314
  8. FAMOTIDINE [Concomitant]
     Active Substance: FAMOTIDINE
     Dates: start: 20220310, end: 20220317
  9. FAMOTIDINE [Concomitant]
     Active Substance: FAMOTIDINE
     Dates: start: 20220414, end: 20220420
  10. LANSOPRAZOLE [Concomitant]
     Active Substance: LANSOPRAZOLE
     Dates: start: 20220318, end: 20220324
  11. MAGNESIUM ISOGLYCYRRHIZINATE [Concomitant]
     Active Substance: MAGNESIUM ISOGLYCYRRHIZINATE
     Dates: start: 20220414, end: 20220420

REACTIONS (1)
  - Chronic obstructive pulmonary disease [Not Recovered/Not Resolved]

NARRATIVE: CASE EVENT DATE: 20220306
